FAERS Safety Report 15705537 (Version 1)
Quarter: 2018Q4

REPORT INFORMATION
  Report Type: Spontaneous
  Country: FR (occurrence: FR)
  Receive Date: 20181210
  Receipt Date: 20181210
  Transmission Date: 20190205
  Serious: Yes (Death)
  Sender: FDA-Public Use
  Company Number: FR-ELITE LABORATORIES INC.-2018ELT00006

PATIENT
  Age: 28 Year
  Sex: Male

DRUGS (1)
  1. METHADONE HYDROCHLORIDE. [Suspect]
     Active Substance: METHADONE HYDROCHLORIDE

REACTIONS (4)
  - Hyperthermia malignant [None]
  - Neuroleptic malignant syndrome [Fatal]
  - Death [Fatal]
  - Toxicity to various agents [Fatal]
